FAERS Safety Report 4358448-X (Version None)
Quarter: 2004Q2

REPORT INFORMATION
  Report Type: 
  Country: None (occurrence: None)
  Receive Date: 20040511
  Receipt Date: 20040427
  Transmission Date: 20050107
  Serious: Yes (Hospitalization)
  Sender: FDA-Public Use
  Company Number: 02P-056-0205056-00

PATIENT
  Age: 45 Year
  Sex: Female

DRUGS (10)
  1. TRICOR [Suspect]
     Indication: HYPERCHOLESTEROLAEMIA
     Dosage: 200 MG, 1 IN 1 D, PER ORAL
     Route: 048
     Dates: start: 19950101
  2. INTERFERON BETA [Concomitant]
  3. ROFECOXIB [Concomitant]
  4. ACENOCOUMAROL [Concomitant]
  5. OMEPRAZOLE [Concomitant]
  6. HYDROCORTISONE [Concomitant]
  7. ETIDRONATE DISODIUM [Concomitant]
  8. LEKOVIT CA [Concomitant]
  9. PRAZEPAM [Concomitant]
  10. TRAMADOL HCL [Concomitant]

REACTIONS (2)
  - GOITRE [None]
  - HYPERTHYROIDISM [None]
